FAERS Safety Report 5855611-3 (Version None)
Quarter: 2008Q3

REPORT INFORMATION
  Report Type: 
  Country: None (occurrence: None)
  Receive Date: 20080821
  Receipt Date: 20080807
  Transmission Date: 20090109
  Serious: Yes (Other)
  Sender: FDA-Public Use
  Company Number: 2008SP016428

PATIENT
  Sex: Female

DRUGS (4)
  1. DRIXORAL [Suspect]
     Indication: MULTIPLE ALLERGIES
     Dosage: PO
     Route: 048
  2. DRIXORAL [Suspect]
     Indication: PROPHYLAXIS OF NAUSEA AND VOMITING
     Dosage: PO
     Route: 048
  3. DRIXORAL [Suspect]
     Indication: SECRETION DISCHARGE
     Dosage: PO
     Route: 048
  4. SINGULAIR (CON.) [Concomitant]

REACTIONS (7)
  - ASTHMA [None]
  - CONDITION AGGRAVATED [None]
  - DRUG DEPENDENCE [None]
  - FATIGUE [None]
  - FEELING ABNORMAL [None]
  - HEADACHE [None]
  - NAUSEA [None]
